FAERS Safety Report 10055038 (Version 1)
Quarter: 2014Q2

REPORT INFORMATION
  Report Type: Spontaneous
  Country: US (occurrence: US)
  Receive Date: 20140402
  Receipt Date: 20140402
  Transmission Date: 20141212
  Serious: No
  Sender: FDA-Public Use
  Company Number: US-SA-2013SA130667

PATIENT
  Age: 54 Year
  Sex: Male

DRUGS (8)
  1. AUBAGIO [Suspect]
     Indication: MULTIPLE SCLEROSIS
     Route: 048
     Dates: start: 201211
  2. VITAMIN D [Concomitant]
  3. PERCOCET [Concomitant]
  4. TRAZODONE HYDROCHLORIDE [Concomitant]
  5. LORAZEPAM [Concomitant]
  6. FLOMAX [Concomitant]
  7. SIMVASTATIN [Concomitant]
  8. BACLOFEN [Concomitant]

REACTIONS (3)
  - Blepharospasm [Unknown]
  - Drug dose omission [Unknown]
  - Paraesthesia [Unknown]
